FAERS Safety Report 8458870-6 (Version None)
Quarter: 2012Q2

REPORT INFORMATION
  Report Type: 
  Country: None (occurrence: None)
  Receive Date: 20120622
  Receipt Date: 20120613
  Transmission Date: 20120825
  Serious: Yes (Hospitalization, Other)
  Sender: FDA-Public Use
  Company Number: US-ROCHE-1027709

PATIENT
  Sex: Female
  Weight: 92.162 kg

DRUGS (1)
  1. ACCUTANE [Suspect]
     Indication: ACNE CYSTIC
     Route: 065
     Dates: start: 19840301, end: 19841101

REACTIONS (6)
  - FEMALE GENITAL TRACT FISTULA [None]
  - FIBROMYALGIA [None]
  - INTESTINAL OBSTRUCTION [None]
  - ANAL FISSURE [None]
  - CROHN'S DISEASE [None]
  - COLONIC FISTULA [None]
